FAERS Safety Report 7310760-8 (Version None)
Quarter: 2011Q1

REPORT INFORMATION
  Report Type: 
  Country: None (occurrence: None)
  Receive Date: 20110224
  Receipt Date: 20110215
  Transmission Date: 20110831
  Serious: Yes (Other)
  Sender: FDA-Public Use
  Company Number: PHHY2011AU13092

PATIENT
  Age: 76 Year
  Sex: Male

DRUGS (1)
  1. ACLASTA [Suspect]
     Route: 042

REACTIONS (2)
  - INFLUENZA LIKE ILLNESS [None]
  - HALLUCINATION [None]
